FAERS Safety Report 25832886 (Version 1)
Quarter: 2025Q3

REPORT INFORMATION
  Report Type: Spontaneous
  Country: US (occurrence: None)
  Receive Date: 20250922
  Receipt Date: 20250922
  Transmission Date: 20251020
  Serious: Yes (unspecified)
  Sender: FDA-CTU
  Company Number: None

PATIENT
  Age: 29 Year
  Sex: Female
  Weight: 66.6 kg

DRUGS (6)
  1. DUPIXENT [Suspect]
     Active Substance: DUPILUMAB
     Indication: Chronic rhinosinusitis with nasal polyps
     Route: 058
     Dates: start: 20230712
  2. Adderall XR 30mg 1capsul every day [Concomitant]
  3. Adderall IR 5mg 2 tablets as needed [Concomitant]
  4. Protopic topical ointment for new skin conditions [Concomitant]
  5. magnesium glycate [Concomitant]
  6. Vitamin D gummy [Concomitant]

REACTIONS (4)
  - Skin disorder [None]
  - Seborrhoeic dermatitis [None]
  - Rosacea [None]
  - Pain [None]

NARRATIVE: CASE EVENT DATE: 20240301
